FAERS Safety Report 7811518-3 (Version None)
Quarter: 2011Q4

REPORT INFORMATION
  Report Type: 
  Country: None (occurrence: None)
  Receive Date: 20111013
  Receipt Date: 20111013
  Transmission Date: 20120403
  Serious: Yes (Other)
  Sender: FDA-Public Use
  Company Number: None

PATIENT
  Sex: Male
  Weight: 59.3 kg

DRUGS (1)
  1. GLYCOPYRROLATE [Suspect]
     Dosage: 200 MCG
     Route: 042

REACTIONS (4)
  - OVERDOSE [None]
  - SINUS TACHYCARDIA [None]
  - DRUG EFFECT PROLONGED [None]
  - TOXICITY TO VARIOUS AGENTS [None]
